FAERS Safety Report 6405160-9 (Version None)
Quarter: 2009Q4

REPORT INFORMATION
  Report Type: 
  Country: None (occurrence: None)
  Receive Date: 20091019
  Receipt Date: 20090406
  Transmission Date: 20100525
  Serious: No
  Sender: FDA-Public Use
  Company Number: US-BAYER-200918131NA

PATIENT
  Age: 41 Year
  Sex: Male

DRUGS (2)
  1. ULTRAVIST 300 [Suspect]
     Indication: COMPUTERISED TOMOGRAM ABDOMEN
     Dosage: TOTAL DAILY DOSE: 140 ML  UNIT DOSE: 200 ML
     Route: 042
     Dates: start: 20090209, end: 20090209
  2. CONTRAST [Concomitant]
     Indication: COMPUTERISED TOMOGRAM ABDOMEN
     Route: 048
     Dates: start: 20090209, end: 20090209

REACTIONS (2)
  - NASAL CONGESTION [None]
  - SNEEZING [None]
